FAERS Safety Report 5898989-7 (Version None)
Quarter: 2008Q3

REPORT INFORMATION
  Report Type: 
  Country: None (occurrence: None)
  Receive Date: 20080925
  Receipt Date: 20080919
  Transmission Date: 20090109
  Serious: Yes (Death, Other)
  Sender: FDA-Public Use
  Company Number: US-PURDUE-USA_2008_0035010

PATIENT
  Age: 32 Year
  Sex: Male

DRUGS (3)
  1. OXYCONTIN [Suspect]
     Indication: DRUG USE FOR UNKNOWN INDICATION
  2. MARIJUANA [Suspect]
     Indication: DRUG ABUSE
  3. AMPHETAMINE SULFATE [Suspect]
     Indication: DRUG ABUSE

REACTIONS (3)
  - EXSANGUINATION [None]
  - GUN SHOT WOUND [None]
  - SUBSTANCE ABUSE [None]
